FAERS Safety Report 23047312 (Version 2)
Quarter: 2023Q4

REPORT INFORMATION
  Report Type: Spontaneous
  Country: US (occurrence: US)
  Receive Date: 20231010
  Receipt Date: 20231010
  Transmission Date: 20240110
  Serious: Yes (Hospitalization, Other)
  Sender: FDA-Public Use
  Company Number: US-SPECGX-T202301966

PATIENT
  Age: 27 Year
  Sex: Female

DRUGS (5)
  1. HYDROMORPHONE [Suspect]
     Active Substance: HYDROMORPHONE
     Indication: Pain
     Dosage: 2 MILLIGRAM
     Route: 048
  2. ATOMOXETINE [Suspect]
     Active Substance: ATOMOXETINE
     Indication: Attention deficit hyperactivity disorder
     Dosage: UNK (AS NEEDED)
     Route: 065
  3. ATOMOXETINE [Suspect]
     Active Substance: ATOMOXETINE
     Dosage: 120 MILLIGRAM (THREE TIMES HER PRESCRIBED DOSE)
     Route: 065
  4. ZAFIRLUKAST [Suspect]
     Active Substance: ZAFIRLUKAST
     Indication: Capsular contracture associated with breast implant
     Dosage: 20-40 MG 1-2 TIMES, QD
     Route: 065
  5. DIAZEPAM [Suspect]
     Active Substance: DIAZEPAM
     Indication: Muscle spasms
     Dosage: 5 MILLIGRAM
     Route: 048

REACTIONS (10)
  - Tonic clonic movements [Unknown]
  - Pituitary apoplexy [Unknown]
  - Cerebral haemorrhage [Unknown]
  - Pituitary tumour benign [Unknown]
  - Diabetes insipidus [Unknown]
  - Rathke^s cleft cyst [Unknown]
  - Hypertension [Unknown]
  - Intentional overdose [Unknown]
  - Transsphenoidal surgery [Unknown]
  - Drug screen false positive [Unknown]
